FAERS Safety Report 20585073 (Version 1)
Quarter: 2022Q1

REPORT INFORMATION
  Report Type: Report from Study
  Country: CN (occurrence: None)
  Receive Date: 20220311
  Receipt Date: 20220311
  Transmission Date: 20220423
  Serious: Yes (Hospitalization)
  Sender: FDA-Public Use
  Company Number: CN-ROCHE-3044374

PATIENT
  Age: 72 Year
  Sex: Female
  Weight: 44 kg

DRUGS (4)
  1. ATEZOLIZUMAB [Suspect]
     Active Substance: ATEZOLIZUMAB
     Indication: Oesophageal squamous cell carcinoma
     Dosage: ON 09/FEB/2022, SHE RECEIVED THE MOST RECENT DOSE OF BLINDED ATEZOLIZUMAB PRIOR TO AE AND SAE ONSET
     Route: 041
     Dates: start: 20210115
  2. TIRAGOLUMAB [Suspect]
     Active Substance: TIRAGOLUMAB
     Indication: Oesophageal squamous cell carcinoma
     Dosage: ON 09/FEB/2022, SHE RECEIVED THE MOST RECENT DOSE OF BLINDED TIRAGOLUMAB PRIOR TO AE AND SAE ONSET
     Route: 042
     Dates: start: 20210115
  3. PACLITAXEL [Suspect]
     Active Substance: PACLITAXEL
     Indication: Oesophageal squamous cell carcinoma
     Dosage: ON 29/APR/2021, SHE RECEIVED THE MOST RECENT DOSE OF PACLITAXEL (231.5 MG) PRIOR TO AE AND SAE ONSET
     Route: 042
     Dates: start: 20210116
  4. CISPLATIN [Suspect]
     Active Substance: CISPLATIN
     Indication: Oesophageal squamous cell carcinoma
     Dosage: ON 29/APR/2021, SHE RECEIVED THE MOST RECENT DOSE OF CISPLATIN (60 MG) PRIOR TO AE AND SAE ONSET
     Route: 042
     Dates: start: 20210116

REACTIONS (1)
  - Syncope [Not Recovered/Not Resolved]

NARRATIVE: CASE EVENT DATE: 20220301
